FAERS Safety Report 14202723 (Version 8)
Quarter: 2023Q1

REPORT INFORMATION
  Report Type: Spontaneous
  Country: GB (occurrence: GB)
  Receive Date: 20171118
  Receipt Date: 20230329
  Transmission Date: 20230418
  Serious: Yes (Death, Hospitalization, Other)
  Sender: FDA-Public Use
  Company Number: GB-BAXTER-2017BAX028147

PATIENT
  Age: 79 Year
  Sex: Female
  Weight: 79 kg

DRUGS (21)
  1. DIANEAL LOW CALCIUM WITH DEXTROSE [Suspect]
     Active Substance: CALCIUM CHLORIDE\DEXTROSE\MAGNESIUM CHLORIDE\SODIUM CHLORIDE\SODIUM LACTATE
     Indication: Peritoneal dialysis
     Dosage: 5 LITERS, QD
     Route: 033
     Dates: start: 20170330, end: 20170712
  2. DIANEAL [Suspect]
     Active Substance: CALCIUM CHLORIDE\DEXTROSE\MAGNESIUM CHLORIDE\SODIUM CHLORIDE\SODIUM LACTATE
     Indication: Peritoneal dialysis
     Dosage: 5 LITERS, BID
     Route: 033
     Dates: start: 20170330, end: 20170712
  3. DIANEAL [Suspect]
     Active Substance: CALCIUM CHLORIDE\DEXTROSE\MAGNESIUM CHLORIDE\SODIUM CHLORIDE\SODIUM LACTATE
     Indication: Peritoneal dialysis
     Dosage: 5L AND 10L ONCE A DAY
     Route: 033
     Dates: start: 20170330, end: 20170712
  4. DIANEAL [Suspect]
     Active Substance: CALCIUM CHLORIDE\DEXTROSE\MAGNESIUM CHLORIDE\SODIUM CHLORIDE\SODIUM LACTATE
     Dosage: UNK
     Route: 065
  5. EXTRANEAL [Suspect]
     Active Substance: CALCIUM CHLORIDE\ICODEXTRIN\MAGNESIUM CHLORIDE\SODIUM CHLORIDE\SODIUM LACTATE
     Indication: Peritoneal dialysis
     Dosage: 2 LITERS, QD, (DOSAGE FORM: SOLUTION)
     Route: 033
     Dates: start: 20170330, end: 20170712
  6. LEVEMIR [Suspect]
     Active Substance: INSULIN DETEMIR
     Indication: Product used for unknown indication
     Dosage: 10 IU DOSAGE FORM: UNSPECIFIED
     Route: 058
     Dates: start: 20170403
  7. LEVEMIR [Suspect]
     Active Substance: INSULIN DETEMIR
     Dosage: UNK
     Route: 058
     Dates: start: 20170403
  8. ENOXAPARIN SODIUM [Suspect]
     Active Substance: ENOXAPARIN SODIUM
     Indication: Product used for unknown indication
     Dosage: 20 MG,DOSAGE FORM: UNSPECIFIED
     Route: 042
     Dates: start: 20170317
  9. ADALAT CC [Suspect]
     Active Substance: NIFEDIPINE
     Indication: Product used for unknown indication
     Dosage: 60 MG,DOSAGE FORM: UNSPECIFIED
     Route: 048
     Dates: start: 20091027
  10. ALFACALCIDOL [Suspect]
     Active Substance: ALFACALCIDOL
     Indication: Product used for unknown indication
     Dosage: 0.25 UG DOSAGE FORM: UNSPECIFIED
     Route: 048
     Dates: start: 20161213
  11. ENGERIX-B [Suspect]
     Active Substance: HEPATITIS B VIRUS SUBTYPE ADW2 HBSAG SURFACE PROTEIN ANTIGEN
     Indication: Product used for unknown indication
     Dosage: 40 UG DOSAGE FORM: UNSPECIFIED
     Route: 030
     Dates: start: 20161003
  12. FOLIC ACID [Suspect]
     Active Substance: FOLIC ACID
     Indication: Product used for unknown indication
     Dosage: 5 MG,DOSAGE FORM: UNSPECIFIED
     Route: 048
     Dates: start: 20170324
  13. FOLIC ACID [Suspect]
     Active Substance: FOLIC ACID
     Dosage: DOSAGE FORM: UNSPECIFIED
     Route: 048
     Dates: start: 20170324
  14. FUROSEMIDE [Suspect]
     Active Substance: FUROSEMIDE
     Indication: Product used for unknown indication
     Dosage: 80 MG,DOSAGE FORM: UNSPECIFIED
     Route: 048
     Dates: start: 20170403
  15. EPREX [Suspect]
     Active Substance: ERYTHROPOIETIN
     Indication: Anaemia
     Dosage: 3000 IU (INTERNATIONAL UNIT),1X A WEEK
     Route: 058
     Dates: start: 20170628
  16. LINAGLIPTIN [Suspect]
     Active Substance: LINAGLIPTIN
     Indication: Product used for unknown indication
     Dosage: 5 MILLIGRAM,QD
     Route: 048
     Dates: start: 20170403
  17. RAMIPRIL [Suspect]
     Active Substance: RAMIPRIL
     Indication: Product used for unknown indication
     Dosage: 2.5  MG,DOSAGE FORM: UNSPECIFIED
     Route: 048
     Dates: start: 20140711
  18. APIDRA [Suspect]
     Active Substance: INSULIN GLULISINE
     Indication: Product used for unknown indication
     Dosage: 12IU (TID) 36 IU (INTERNATIONAL UNIT,QD, DOSAGE FORM: UNKNOWN
     Route: 058
     Dates: start: 20170403
  19. SODIUM BICARBONATE [Suspect]
     Active Substance: SODIUM BICARBONATE
     Indication: Product used for unknown indication
     Dosage: 1 G QD, DOSAGE FORM: UNSPECIFIED
     Route: 048
     Dates: start: 20170403
  20. ICODEXTRIN [Suspect]
     Active Substance: ICODEXTRIN
     Indication: Peritoneal dialysis
     Dosage: 2 LITERS
     Route: 065
     Dates: start: 20170330
  21. VENOFER [Concomitant]
     Active Substance: IRON SUCROSE
     Indication: Product used for unknown indication
     Dosage: 100 MG 1X WEEK,DOSAGE FORM: UNKNOWN
     Route: 042
     Dates: start: 20170324

REACTIONS (1)
  - Cerebrovascular accident [Fatal]

NARRATIVE: CASE EVENT DATE: 20170712
